FAERS Safety Report 4627346-6 (Version None)
Quarter: 2005Q1

REPORT INFORMATION
  Report Type: 
  Country: None (occurrence: None)
  Receive Date: 20050331
  Receipt Date: 20050322
  Transmission Date: 20050727
  Serious: Yes (Other)
  Sender: FDA-Public Use
  Company Number: 2005-00094

PATIENT
  Age: 72 Year
  Sex: Female
  Weight: 60 kg

DRUGS (8)
  1. VELCADE [Suspect]
     Indication: MULTIPLE MYELOMA
     Dosage: 2.10 MG, INTRAVENOUS
     Route: 042
     Dates: start: 20050110, end: 20050117
  2. HYDROMORPHONE [Concomitant]
  3. AMLODIPINE [Concomitant]
  4. ENALAPRIL [Concomitant]
  5. PANTOPRAZOLE SODIUM [Concomitant]
  6. SERTRALINE HCL [Concomitant]
  7. TORSEMIDE [Concomitant]
  8. URAPIDIL [Concomitant]

REACTIONS (11)
  - ABSCESS LIMB [None]
  - FIBRIN [None]
  - GRANULOCYTE COUNT INCREASED [None]
  - INFLAMMATION [None]
  - JOINT EFFUSION [None]
  - LYMPHOCYTE PERCENTAGE DECREASED [None]
  - METASTASIS [None]
  - MONARTHRITIS [None]
  - MUSCLE NECROSIS [None]
  - NEUTROPHIL PERCENTAGE INCREASED [None]
  - PAIN [None]
